FAERS Safety Report 11647650 (Version 1)
Quarter: 2015Q4

REPORT INFORMATION
  Report Type: Spontaneous
  Country: US (occurrence: None)
  Receive Date: 20151020
  Receipt Date: 20151020
  Transmission Date: 20160304
  Serious: Yes (Life-Threatening)
  Sender: FDA-Public Use
  Company Number: None

PATIENT
  Age: 38 Year
  Sex: Female
  Weight: 53.07 kg

DRUGS (21)
  1. VITAMIN D3 [Concomitant]
     Active Substance: CHOLECALCIFEROL
  2. VITAMIN B12 [Concomitant]
     Active Substance: CYANOCOBALAMIN
  3. LORATADINE. [Concomitant]
     Active Substance: LORATADINE
  4. AZLEX CREAM [Concomitant]
  5. LEVOTHYROXIN [Concomitant]
     Active Substance: LEVOTHYROXINE
  6. CYCLOBENZAPR [Concomitant]
  7. TUDORZA PRESSAIR [Concomitant]
     Active Substance: ACLIDINIUM BROMIDE
  8. BIOTIN [Concomitant]
     Active Substance: BIOTIN
  9. VITAMIN D [Concomitant]
     Active Substance: CHOLECALCIFEROL
  10. ALPRAZOLAM. [Concomitant]
     Active Substance: ALPRAZOLAM
  11. PANTOPRAZOLE [Concomitant]
     Active Substance: PANTOPRAZOLE SODIUM
  12. CRANBERRY FRUIT [Concomitant]
  13. MODAFINIL. [Concomitant]
     Active Substance: MODAFINIL
  14. SUCRALFATE. [Concomitant]
     Active Substance: SUCRALFATE
  15. ALBUTEROL. [Concomitant]
     Active Substance: ALBUTEROL
  16. ALBUTEROL NEBULISER SOLUTION [Concomitant]
     Active Substance: ALBUTEROL SULFATE
  17. PERDIEM [Concomitant]
     Active Substance: SENNOSIDES
  18. VITAMIN C [Concomitant]
     Active Substance: ASCORBIC ACID
  19. BENADRYL [Concomitant]
     Active Substance: DIPHENHYDRAMINE HYDROCHLORIDE
  20. TECFIDERA [Suspect]
     Active Substance: DIMETHYL FUMARATE
     Indication: MULTIPLE SCLEROSIS
     Dosage: 2 PILLS
     Route: 048
  21. ESCITALPRAM [Concomitant]

REACTIONS (5)
  - Vision blurred [None]
  - Pruritus [None]
  - Flushing [None]
  - Asthenia [None]
  - Optic neuritis [None]

NARRATIVE: CASE EVENT DATE: 20151012
